FAERS Safety Report 15889813 (Version 1)
Quarter: 2019Q1

REPORT INFORMATION
  Report Type: Report from Study
  Country: CA (occurrence: CA)
  Receive Date: 20190130
  Receipt Date: 20190130
  Transmission Date: 20190417
  Serious: Yes (Hospitalization)
  Sender: FDA-Public Use
  Company Number: CA-JNJFOC-20190131686

PATIENT
  Age: 75 Year
  Sex: Female
  Weight: 103.5 kg

DRUGS (1)
  1. REMICADE [Suspect]
     Active Substance: INFLIXIMAB
     Indication: CROHN^S DISEASE
     Dosage: STRENGTH = 100 MG
     Route: 042
     Dates: start: 20120213

REACTIONS (2)
  - Metastases to liver [Unknown]
  - Metastases to spine [Unknown]

NARRATIVE: CASE EVENT DATE: 20181227
